FAERS Safety Report 13151902 (Version 1)
Quarter: 2017Q1

REPORT INFORMATION
  Report Type: Spontaneous
  Country: US (occurrence: US)
  Receive Date: 20170125
  Receipt Date: 20170125
  Transmission Date: 20170428
  Serious: Yes (Other)
  Sender: FDA-Public Use
  Company Number: US-BIOGEN-2017BI00347302

PATIENT
  Sex: Female

DRUGS (1)
  1. TYSABRI [Suspect]
     Active Substance: NATALIZUMAB
     Indication: MULTIPLE SCLEROSIS
     Route: 065
     Dates: start: 20120430

REACTIONS (7)
  - Myocarditis [Unknown]
  - Dizziness [Unknown]
  - Back pain [Unknown]
  - Balance disorder [Unknown]
  - Chest pain [Unknown]
  - Migraine [Unknown]
  - Peripheral swelling [Unknown]
